FAERS Safety Report 18580027 (Version 1)
Quarter: 2020Q4

REPORT INFORMATION
  Report Type: Report from Study
  Country: IE (occurrence: IE)
  Receive Date: 20201204
  Receipt Date: 20201204
  Transmission Date: 20210114
  Serious: Yes (Hospitalization)
  Sender: FDA-Public Use
  Company Number: IE-TAKEDA-IE201707085

PATIENT

DRUGS (2)
  1. IDURSULFASE [Suspect]
     Active Substance: IDURSULFASE
     Indication: MUCOPOLYSACCHARIDOSIS II
     Dosage: 0.5 MG/KG, 1X/WEEK
     Route: 041
     Dates: start: 20070712
  2. IDURSULFASE [Suspect]
     Active Substance: IDURSULFASE
     Dosage: 0.38 MG/KG, 1X/WEEK
     Route: 041
     Dates: start: 20130429

REACTIONS (4)
  - Device issue [Recovered/Resolved]
  - Diarrhoea [Recovered/Resolved]
  - Lung consolidation [Recovered/Resolved]
  - Retching [Recovered/Resolved]

NARRATIVE: CASE EVENT DATE: 20170322
